FAERS Safety Report 19773370 (Version 2)
Quarter: 2021Q3

REPORT INFORMATION
  Report Type: Spontaneous
  Country: FR (occurrence: FR)
  Receive Date: 20210901
  Receipt Date: 20210902
  Transmission Date: 20211014
  Serious: Yes (Death)
  Sender: FDA-Public Use
  Company Number: FR-CELLTRION INC.-2021FR011563

PATIENT

DRUGS (12)
  1. VINCRISTINE SULFATE. [Suspect]
     Active Substance: VINCRISTINE SULFATE
     Indication: DIFFUSE LARGE B-CELL LYMPHOMA
     Dosage: 1 MG, CYCLIC (TD AT D?7)
     Route: 042
  2. LENALIDOMIDE [Suspect]
     Active Substance: LENALIDOMIDE
     Indication: DIFFUSE LARGE B-CELL LYMPHOMA
     Dosage: 10 MG TD ON D1 TO D14 EVERY 3 WEEKS
  3. RITUXIMAB. [Suspect]
     Active Substance: RITUXIMAB
     Dosage: 1400 MG, CYCLIC (TD ON D1 OF CYCLES 2?6)
     Route: 058
  4. PREDNISONE. [Suspect]
     Active Substance: PREDNISONE
     Dosage: 60 MG/M2, UNK (PER OS, DAYS ?7 TO ?1)
     Route: 048
  5. DOXORUBICIN HCL [Suspect]
     Active Substance: DOXORUBICIN HYDROCHLORIDE
     Indication: DIFFUSE LARGE B-CELL LYMPHOMA
     Dosage: 25 MG/M2, CYCLIC (ON D1, 21?DAYS CYCLE)
  6. VINCRISTINE SULFATE. [Suspect]
     Active Substance: VINCRISTINE SULFATE
     Dosage: 1 MG, CYCLIC (TD ON D1, 21?DAYS CYCLE)
  7. DOXORUBICIN [Suspect]
     Active Substance: DOXORUBICIN
     Indication: DIFFUSE LARGE B-CELL LYMPHOMA
     Dosage: 25 MG/M2 ON D1
  8. RITUXIMAB. [Suspect]
     Active Substance: RITUXIMAB
     Indication: DIFFUSE LARGE B-CELL LYMPHOMA
     Dosage: 375 MG/M2, CYCLIC (ON D1, FIRST CYCLE)
     Route: 042
  9. PREDNISONE. [Suspect]
     Active Substance: PREDNISONE
     Indication: DIFFUSE LARGE B-CELL LYMPHOMA
     Dosage: 40 MG/M2, CYCLIC (D1 TO D5, 21?DAYS CYCLE)
  10. CYCLOPHOSPHAMIDE. [Suspect]
     Active Substance: CYCLOPHOSPHAMIDE
     Indication: DIFFUSE LARGE B-CELL LYMPHOMA
     Dosage: 400 MG/M2, CYCLIC (ON D1,21?DAYS CYCLE)
  11. VINCRISTINE [Suspect]
     Active Substance: VINCRISTINE
     Indication: DIFFUSE LARGE B-CELL LYMPHOMA
     Dosage: 1 MG, TD ON D1
  12. VINCRISTINE [Suspect]
     Active Substance: VINCRISTINE
     Dosage: 1 MG TD IV, AT D?7

REACTIONS (2)
  - Incorrect route of product administration [Unknown]
  - Toxicity to various agents [Fatal]
